FAERS Safety Report 15383639 (Version 1)
Quarter: 2018Q3

REPORT INFORMATION
  Report Type: Report from Study
  Country: US (occurrence: US)
  Receive Date: 20180913
  Receipt Date: 20180913
  Transmission Date: 20181010
  Serious: Yes (Other)
  Sender: FDA-Public Use
  Company Number: US-GILEAD-2018-0361836

PATIENT
  Age: 86 Year
  Sex: Female

DRUGS (1)
  1. IDELALISIB [Suspect]
     Active Substance: IDELALISIB
     Indication: CHRONIC LYMPHOCYTIC LEUKAEMIA
     Dosage: 150 MG, UNK
     Route: 065
     Dates: start: 20180324

REACTIONS (3)
  - Renal transplant [Not Recovered/Not Resolved]
  - Malaise [Not Recovered/Not Resolved]
  - Nail hypertrophy [Not Recovered/Not Resolved]

NARRATIVE: CASE EVENT DATE: 201808
